FAERS Safety Report 6088717-7 (Version None)
Quarter: 2009Q1

REPORT INFORMATION
  Report Type: 
  Country: None (occurrence: None)
  Receive Date: 20090219
  Receipt Date: 20090211
  Transmission Date: 20090719
  Serious: Yes (Hospitalization)
  Sender: FDA-Public Use
  Company Number: 100#03#2009-00542

PATIENT

DRUGS (3)
  1. DOXAZOSIN (DOXAZOSIN) [Suspect]
     Indication: HYPERTENSION
  2. RAMIPRIL [Suspect]
     Indication: HYPERTENSION
  3. BENDROFLUMETHIAZIDE (BENDROFLUMETHIAZIDE) [Suspect]
     Indication: HYPERTENSION

REACTIONS (3)
  - DEHYDRATION [None]
  - ORTHOSTATIC HYPOTENSION [None]
  - POTENTIATING DRUG INTERACTION [None]
